FAERS Safety Report 6157809-6 (Version None)
Quarter: 2009Q2

REPORT INFORMATION
  Report Type: 
  Country: None (occurrence: None)
  Receive Date: 20090414
  Receipt Date: 20090401
  Transmission Date: 20091009
  Serious: Yes (Death, Hospitalization)
  Sender: FDA-Public Use
  Company Number: 2009EN000128

PATIENT
  Age: 2 Month
  Sex: Female
  Weight: 3.2 kg

DRUGS (1)
  1. ADAGEN [Suspect]
     Indication: DRUG USE FOR UNKNOWN INDICATION
     Dosage: IM
     Route: 030
     Dates: end: 20081204

REACTIONS (3)
  - CONVULSION [None]
  - ENCEPHALOPATHY [None]
  - RESPIRATORY FAILURE [None]
